FAERS Safety Report 17280184 (Version 1)
Quarter: 2020Q1

REPORT INFORMATION
  Report Type: Spontaneous
  Country: GR (occurrence: GR)
  Receive Date: 20200117
  Receipt Date: 20200117
  Transmission Date: 20200409
  Serious: Yes (Congenital Anomaly)
  Sender: FDA-Public Use
  Company Number: GR-ABBVIE-20P-066-3236897-00

PATIENT
  Age: 33 Year
  Sex: Female

DRUGS (2)
  1. FOLLITROPIN BETA [Concomitant]
     Active Substance: FOLLITROPIN
     Indication: IN VITRO FERTILISATION
     Dosage: UNK
  2. DARONDA DEPOT [Suspect]
     Active Substance: LEUPROLIDE ACETATE
     Indication: IN VITRO FERTILISATION
     Route: 058
     Dates: start: 200111

REACTIONS (1)
  - Trisomy 21 [Not Recovered/Not Resolved]
